FAERS Safety Report 8485002-0 (Version None)
Quarter: 2012Q3

REPORT INFORMATION
  Report Type: 
  Country: None (occurrence: None)
  Receive Date: 20120703
  Receipt Date: 20120628
  Transmission Date: 20120928
  Serious: No
  Sender: FDA-Public Use
  Company Number: US-TEVA-345831USA

PATIENT
  Sex: Female

DRUGS (1)
  1. NUVIGIL [Suspect]
     Dosage: UNKNOWN
     Route: 048
     Dates: start: 20120628

REACTIONS (1)
  - ABDOMINAL DISCOMFORT [None]
